FAERS Safety Report 10877872 (Version 1)
Quarter: 2015Q1

REPORT INFORMATION
  Report Type: Other
  Country: GB (occurrence: GB)
  Receive Date: 20150302
  Receipt Date: 20150302
  Transmission Date: 20150721
  Serious: Yes (Other)
  Sender: FDA-Public Use
  Company Number: GB-MYLANLABS-2015M1005032

PATIENT

DRUGS (2)
  1. CINNARIZINE [Concomitant]
     Active Substance: CINNARIZINE
     Dosage: UNK
  2. ANASTROZOLE. [Suspect]
     Active Substance: ANASTROZOLE
     Indication: BREAST CANCER FEMALE
     Dosage: 1 MG, QD
     Route: 048

REACTIONS (8)
  - Vasculitis [Recovering/Resolving]
  - Arthralgia [Recovered/Resolved]
  - Hot flush [Recovered/Resolved]
  - Headache [Recovered/Resolved]
  - Bone pain [Recovered/Resolved]
  - Nausea [Recovered/Resolved]
  - Condition aggravated [Unknown]
  - Vestibular disorder [Not Recovered/Not Resolved]

NARRATIVE: CASE EVENT DATE: 20150114
